FAERS Safety Report 15494579 (Version 1)
Quarter: 2018Q4

REPORT INFORMATION
  Report Type: Report from Study
  Country: US (occurrence: US)
  Receive Date: 20181012
  Receipt Date: 20181012
  Transmission Date: 20190205
  Serious: Yes (Life-Threatening, Hospitalization, Other)
  Sender: FDA-Public Use
  Company Number: US-BRISTOL-MYERS SQUIBB COMPANY-BMS-2018-087160

PATIENT
  Age: 67 Year
  Sex: Male
  Weight: 57.5 kg

DRUGS (2)
  1. IPILIMUMAB [Suspect]
     Active Substance: IPILIMUMAB
     Indication: ADRENOCORTICAL CARCINOMA
     Dosage: 72 MG, UNK
     Route: 042
     Dates: start: 20180627
  2. NIVOLUMAB [Suspect]
     Active Substance: NIVOLUMAB
     Indication: ADRENOCORTICAL CARCINOMA
     Dosage: 240 MG, UNK
     Route: 042
     Dates: start: 20180627

REACTIONS (7)
  - Myocarditis [Not Recovered/Not Resolved]
  - Hyponatraemia [Unknown]
  - Loss of consciousness [Unknown]
  - Dehydration [Unknown]
  - Acute respiratory failure [Unknown]
  - Pleural effusion [Unknown]
  - Metabolic disorder [Unknown]

NARRATIVE: CASE EVENT DATE: 20180903
